FAERS Safety Report 4562665-3 (Version None)
Quarter: 2005Q1

REPORT INFORMATION
  Report Type: 
  Country: None (occurrence: None)
  Receive Date: 20050124
  Receipt Date: 20050117
  Transmission Date: 20050727
  Serious: Yes (Hospitalization)
  Sender: FDA-Public Use
  Company Number: 2005013869

PATIENT
  Age: 59 Year
  Sex: Male

DRUGS (5)
  1. TAHOR (ATORVASTATIN) [Suspect]
     Indication: ILL-DEFINED DISORDER
     Dosage: UNKNOWN (1 IN 1 D), ORAL
     Route: 048
     Dates: start: 20040730, end: 20040928
  2. GANCICLOVIR SODIUM [Suspect]
     Indication: ILL-DEFINED DISORDER
     Dosage: 2 GRAM (1 IN 1 D), ORAL
     Route: 048
     Dates: start: 20040713, end: 20040928
  3. BACTRIM [Suspect]
     Indication: ILL-DEFINED DISORDER
     Dosage: UNKNOWN (1 IN 1 D), ORAL
     Route: 048
     Dates: start: 20040713, end: 20040929
  4. MYCOPHENOLATE MOFETIL (MYCOPHENOLATE MOFETIL) [Concomitant]
  5. ESOMEPRAZOLE MAGNESIUM (ESOMEPRAZOLE MAGNESIUM) [Concomitant]

REACTIONS (2)
  - DRUG TOXICITY [None]
  - NEUTROPENIA [None]
